FAERS Safety Report 8850351 (Version 1)
Quarter: 2012Q4

REPORT INFORMATION
  Report Type: Report from Study
  Country: DE (occurrence: DE)
  Receive Date: 20121019
  Receipt Date: 20121019
  Transmission Date: 20130627
  Serious: Yes (Hospitalization)
  Sender: FDA-Public Use
  Company Number: DE-BAXTER-2012BAX019561

PATIENT
  Age: 62 Year
  Sex: Male
  Weight: 73 kg

DRUGS (11)
  1. ENDOXAN 1G [Suspect]
     Indication: NODULAR LYMPHOMA
     Route: 042
     Dates: start: 20111124
  2. ENDOXAN 1G [Suspect]
     Route: 042
     Dates: start: 20120308
  3. RITUXIMAB [Suspect]
     Indication: NODULAR LYMPHOMA
     Route: 042
     Dates: start: 20111124
  4. RITUXIMAB [Suspect]
     Route: 042
     Dates: start: 20120308
  5. RITUXIMAB [Suspect]
     Dosage: Volume 710 ml
     Route: 042
     Dates: start: 20120329
  6. DOXORUBICIN [Suspect]
     Indication: NODULAR LYMPHOMA
     Route: 042
     Dates: start: 20111124
  7. DOXORUBICIN [Suspect]
     Route: 042
     Dates: start: 20120308
  8. VINCRISTINE [Suspect]
     Indication: NODULAR LYMPHOMA
     Route: 042
  9. VINCRISTINE [Suspect]
     Route: 042
     Dates: start: 20120308
  10. PREDNISONE [Suspect]
     Indication: NODULAR LYMPHOMA
     Route: 048
     Dates: start: 20111124
  11. PREDNISONE [Suspect]
     Route: 048
     Dates: start: 20120312

REACTIONS (2)
  - Spinal fracture [Not Recovered/Not Resolved]
  - Back pain [Recovered/Resolved]
